FAERS Safety Report 6146664-6 (Version None)
Quarter: 2009Q2

REPORT INFORMATION
  Report Type: 
  Country: None (occurrence: None)
  Receive Date: 20090407
  Receipt Date: 20090330
  Transmission Date: 20091009
  Serious: Yes (Other)
  Sender: FDA-Public Use
  Company Number: US-ELI_LILLY_AND_COMPANY-US200903007418

PATIENT
  Sex: Female

DRUGS (8)
  1. HUMALOG [Suspect]
  2. HUMALOG [Suspect]
  3. HUMALOG [Suspect]
  4. LANTUS [Concomitant]
     Dosage: UNK, EACH EVENING
  5. COREG [Concomitant]
  6. LYRICA [Concomitant]
  7. PRILOSEC [Concomitant]
  8. ZYRTEC [Concomitant]

REACTIONS (10)
  - BLINDNESS UNILATERAL [None]
  - BLOOD PRESSURE FLUCTUATION [None]
  - DIABETIC RETINOPATHY [None]
  - DRUG DISPENSING ERROR [None]
  - EYE HAEMORRHAGE [None]
  - HAEMODIALYSIS [None]
  - MEDICATION ERROR [None]
  - RENAL FAILURE CHRONIC [None]
  - VISION BLURRED [None]
  - VISUAL ACUITY REDUCED [None]
